FAERS Safety Report 8025863-2 (Version None)
Quarter: 2012Q1

REPORT INFORMATION
  Report Type: 
  Country: None (occurrence: None)
  Receive Date: 20120105
  Receipt Date: 20111027
  Transmission Date: 20120608
  Serious: No
  Sender: FDA-Public Use
  Company Number: US-ABBOTT-11P-163-0718214-00

PATIENT
  Sex: Female
  Weight: 42.222 kg

DRUGS (6)
  1. TYLENOL W/ CODEINE NO. 4 [Concomitant]
     Indication: PRODUCT USED FOR UNKNOWN INDICATION
  2. SYNTHROID [Suspect]
     Indication: THYROIDECTOMY
     Dosage: SUNDAY ANOTHER 1/2 OF 125MCG
     Dates: start: 20080101
  3. DILANTIN [Concomitant]
     Indication: CONVULSION
  4. LORAZEPAM [Concomitant]
     Indication: CONVULSION
  5. ENSURE [Concomitant]
     Indication: PRODUCT USED FOR UNKNOWN INDICATION
  6. VIMPAT [Suspect]
     Indication: PRODUCT USED FOR UNKNOWN INDICATION
     Dosage: 50 IN AM 150 IN AFTERNOON

REACTIONS (3)
  - HYPERHIDROSIS [None]
  - HEART RATE INCREASED [None]
  - BLOOD THYROID STIMULATING HORMONE INCREASED [None]
